FAERS Safety Report 10645061 (Version 1)
Quarter: 2014Q4

REPORT INFORMATION
  Report Type: Spontaneous
  Country: US (occurrence: None)
  Receive Date: 20141209
  Receipt Date: 20141209
  Transmission Date: 20150529
  Serious: Yes (Other)
  Sender: FDA-Public Use
  Company Number: 2014AP005780

PATIENT
  Age: 64 Year
  Sex: Male
  Weight: 123.3 kg

DRUGS (26)
  1. AMBIEN [Concomitant]
     Active Substance: ZOLPIDEM TARTRATE
  2. LAMICTAL [Concomitant]
     Active Substance: LAMOTRIGINE
  3. LORATADINE (LORATADINE) [Concomitant]
  4. METOPROLOL (METOPROLOL) [Concomitant]
     Active Substance: METOPROLOL
  5. VITAMIN C [Concomitant]
     Active Substance: ASCORBIC ACID
  6. PROVENTIL HFA (SALBUTAMOL) [Concomitant]
  7. SENNA LAX (SENNOSIDE A+B) [Concomitant]
  8. FERRIPROX [Suspect]
     Active Substance: DEFERIPRONE
     Indication: IRON METABOLISM DISORDER
     Route: 048
     Dates: start: 201410, end: 20141022
  9. FUROSEMIDE (FUROSEMIDE) [Concomitant]
     Active Substance: FUROSEMIDE
  10. DILTIAZEM (DILTIAZEM) [Concomitant]
  11. VITAMIN D3 [Concomitant]
     Active Substance: CHOLECALCIFEROL
  12. FENOFIBRATE (FENOFIBRATE) [Concomitant]
  13. SUMBICORT (BUDESONIDE, FORMOTEROL FUMARATE) [Concomitant]
  14. CYANOCOBALAMIN (CYANOCOBALAMIN) [Concomitant]
  15. FLUOCINONIDE (FLUOCINONIDE) [Concomitant]
  16. LEXAPRO [Concomitant]
     Active Substance: ESCITALOPRAM OXALATE
  17. MVI  (VITAMINS NOS) [Concomitant]
  18. MECLIZINE (MECLOZINE) [Concomitant]
  19. SPIRIVA (TIOTROPIUM BROMIDE) [Concomitant]
  20. DOCUSATE SODIUM (DOCUSATE SODIUM) [Concomitant]
     Active Substance: DOCUSATE SODIUM
  21. KLOR-CON M20 (POTASSIUM CHLORIDE) [Concomitant]
  22. NOVOLOG [Concomitant]
     Active Substance: INSULIN ASPART
  23. TRAZADOL (TRAZODONE HYDROCHLORIDE) [Concomitant]
  24. ASPIRIN (ACETYLSALICYLIC ACID) [Concomitant]
     Active Substance: ASPIRIN
  25. FOLIC ACID (FOLIC ACID) [Concomitant]
     Active Substance: FOLIC ACID
  26. LANTUS [Concomitant]
     Active Substance: INSULIN GLARGINE

REACTIONS (2)
  - Neutropenia [None]
  - White blood cell count decreased [None]

NARRATIVE: CASE EVENT DATE: 20141021
